FAERS Safety Report 16828080 (Version 1)
Quarter: 2019Q3

REPORT INFORMATION
  Report Type: Report from Study
  Country: IE (occurrence: IE)
  Receive Date: 20190919
  Receipt Date: 20190919
  Transmission Date: 20191005
  Serious: Yes (Other)
  Sender: FDA-Public Use
  Company Number: IE-JNJFOC-20190919973

PATIENT
  Age: 74 Year
  Sex: Male

DRUGS (6)
  1. XARELTO [Concomitant]
     Active Substance: RIVAROXABAN
     Route: 050
  2. BISOP [Concomitant]
     Route: 050
  3. ALLOPURINOL. [Concomitant]
     Active Substance: ALLOPURINOL
     Route: 050
  4. DOMERID [Concomitant]
     Route: 050
  5. IBRUTINIB [Suspect]
     Active Substance: IBRUTINIB
     Indication: LYMPHOMA
     Route: 048
     Dates: start: 20180827
  6. VALOID [Concomitant]
     Active Substance: CYCLIZINE HYDROCHLORIDE
     Route: 065

REACTIONS (3)
  - Product use in unapproved indication [Unknown]
  - Limb mass [Not Recovered/Not Resolved]
  - Off label use [Unknown]

NARRATIVE: CASE EVENT DATE: 20180827
